FAERS Safety Report 9970676 (Version 1)
Quarter: 2014Q1

REPORT INFORMATION
  Report Type: Spontaneous
  Country: US (occurrence: None)
  Receive Date: 20140305
  Receipt Date: 20140305
  Transmission Date: 20141002
  Serious: Yes (Disabling)
  Sender: FDA-Public Use
  Company Number: None

PATIENT
  Age: 52 Year
  Sex: Female
  Weight: 58.97 kg

DRUGS (1)
  1. LEVAQUIN [Suspect]
     Indication: ATYPICAL PNEUMONIA
     Dosage: 7 ONCE DAILY
     Route: 048
     Dates: start: 20131214, end: 20131218

REACTIONS (15)
  - Diarrhoea [None]
  - Nightmare [None]
  - Insomnia [None]
  - Anxiety [None]
  - Feeling abnormal [None]
  - Sleep disorder [None]
  - Chest discomfort [None]
  - Arrhythmia [None]
  - Tinnitus [None]
  - Headache [None]
  - Exercise tolerance decreased [None]
  - Pain [None]
  - Tendon pain [None]
  - Musculoskeletal pain [None]
  - Pain in extremity [None]
